FAERS Safety Report 9397455 (Version 1)
Quarter: 2013Q3

REPORT INFORMATION
  Report Type: Spontaneous
  Country: US (occurrence: None)
  Receive Date: 20130701
  Receipt Date: 20130701
  Transmission Date: 20140515
  Serious: Yes (Death)
  Sender: FDA-Public Use
  Company Number: 2013PROUSA02923

PATIENT
  Age: 86 Year
  Sex: Male

DRUGS (10)
  1. PROVENGE (SIPULEUCEL-T) SUSPENSION [Suspect]
     Indication: PROSTATE CANCER METASTATIC
     Dosage: 250 ML, SINGLE, INTRAVENOUS
     Route: 042
     Dates: start: 20130228, end: 20130228
  2. AVODART (DUTASTERIDE) [Concomitant]
  3. CASODEX (BICALUTAMIDE) [Concomitant]
  4. FLUTAMIDE (FLUTAMIDE) [Concomitant]
  5. CALCIUM (CALCIUM GLUCONATE) [Concomitant]
  6. PULMICORT (BUDESONIDE) [Concomitant]
  7. TOPROL XL (METOPROLOL SUCCINATE) (100 MILLIGRAM) (METOPROLOL SUCCINATE) [Concomitant]
  8. ISOSORBIDE DINITRATE (ISOSORBIDE DINITRATE) [Concomitant]
  9. WARFARIN SODIUM (WARFARIN SODIUM) [Concomitant]
  10. TIAZAC (DILTIAZEM HYDROCHLORIDE) [Concomitant]

REACTIONS (2)
  - Disease progression [None]
  - Prostate cancer [None]
